FAERS Safety Report 13538811 (Version 1)
Quarter: 2017Q2

REPORT INFORMATION
  Report Type: Spontaneous
  Country: US (occurrence: US)
  Receive Date: 20170511
  Receipt Date: 20170511
  Transmission Date: 20170830
  Serious: Yes (Other)
  Sender: FDA-Public Use
  Company Number: None

PATIENT
  Age: 63 Year
  Sex: Female
  Weight: 71.8 kg

DRUGS (13)
  1. MVI [Concomitant]
     Active Substance: VITAMINS
  2. CETIRIZINE [Concomitant]
     Active Substance: CETIRIZINE HYDROCHLORIDE
  3. SONATA [Concomitant]
     Active Substance: ZALEPLON
  4. VITAMIN C [Concomitant]
     Active Substance: ASCORBIC ACID
  5. HUMALOG [Concomitant]
     Active Substance: INSULIN LISPRO
  6. FEMARA [Concomitant]
     Active Substance: LETROZOLE
  7. SYNTHROID [Concomitant]
     Active Substance: LEVOTHYROXINE SODIUM
  8. MOBIC [Concomitant]
     Active Substance: MELOXICAM
  9. IBRANCE [Suspect]
     Active Substance: PALBOCICLIB
     Indication: BREAST CANCER METASTATIC
     Route: 048
     Dates: start: 20150601, end: 20170508
  10. ATORVASTATIN [Concomitant]
     Active Substance: ATORVASTATIN
  11. DOXYCYCLINE. [Concomitant]
     Active Substance: DOXYCYCLINE
  12. LANTUS [Concomitant]
     Active Substance: INSULIN GLARGINE
  13. TRAMADOL. [Concomitant]
     Active Substance: TRAMADOL

REACTIONS (5)
  - Erythema [None]
  - Swelling face [None]
  - Feeling hot [None]
  - Crying [None]
  - Eye swelling [None]

NARRATIVE: CASE EVENT DATE: 20170508
